FAERS Safety Report 25950292 (Version 3)
Quarter: 2025Q4

REPORT INFORMATION
  Report Type: Report from Study
  Country: KR (occurrence: KR)
  Receive Date: 20251022
  Receipt Date: 20251223
  Transmission Date: 20260118
  Serious: No
  Sender: ABBVIE
  Company Number: KR-ABBVIE-6477667

PATIENT
  Age: 72 Year
  Sex: Female
  Weight: 60 kg

DRUGS (33)
  1. VENCLEXTA [Suspect]
     Active Substance: VENETOCLAX
     Indication: Acute myeloid leukaemia
     Route: 048
     Dates: start: 20250625, end: 20250625
  2. VENCLEXTA [Suspect]
     Active Substance: VENETOCLAX
     Indication: Acute myeloid leukaemia
     Route: 048
     Dates: start: 20250623, end: 20250623
  3. VENCLEXTA [Suspect]
     Active Substance: VENETOCLAX
     Indication: Acute myeloid leukaemia
     Route: 048
     Dates: start: 20250624, end: 20250624
  4. VENCLEXTA [Suspect]
     Active Substance: VENETOCLAX
     Indication: Acute myeloid leukaemia
     Route: 048
     Dates: start: 20250626, end: 20250721
  5. VENCLEXTA [Suspect]
     Active Substance: VENETOCLAX
     Indication: Acute myeloid leukaemia
     Route: 048
     Dates: start: 20250812, end: 20250901
  6. Yuhan vitamin c [Concomitant]
     Indication: Nutritional supplementation
     Dosage: 1000MG TAB
     Route: 048
     Dates: start: 20250623, end: 20250805
  7. TRANEXAMIC ACID [Concomitant]
     Active Substance: TRANEXAMIC ACID
     Indication: Haemorrhage prophylaxis
     Dosage: INJ 500MG/5ML
     Route: 042
     Dates: start: 20250709, end: 20250729
  8. PENIRAMIN [Concomitant]
     Indication: Premedication
     Dosage: PRN
     Route: 042
     Dates: start: 20250805, end: 20250903
  9. PENIRAMIN [Concomitant]
     Indication: Premedication
     Dosage: INJ, PRN
     Route: 042
     Dates: start: 20250703, end: 20250802
  10. Yuhan meropen [Concomitant]
     Indication: Bacteraemia
     Dosage: TIME INTERVAL: 0.33333333 DAYS: INJ 500MG
     Route: 042
     Dates: start: 20250907
  11. FREAMINE III NOS [Concomitant]
     Active Substance: AMINO ACIDS
     Indication: Nutritional supplementation
     Dosage: 10% INJ 500ML (BAG)?EVERY OTHER DAY
     Route: 042
     Dates: start: 20250703, end: 20250707
  12. FREAMINE III NOS [Concomitant]
     Active Substance: AMINO ACIDS
     Indication: Nutritional supplementation
     Route: 042
     Dates: start: 20250904
  13. FREAMINE III NOS [Concomitant]
     Active Substance: AMINO ACIDS
     Indication: Nutritional supplementation
     Dosage: PRN
     Route: 042
     Dates: start: 20250729, end: 20250801
  14. BANAN [Concomitant]
     Active Substance: CEFPODOXIME PROXETIL
     Indication: Bacteraemia
     Dosage: TAB
     Route: 048
     Dates: start: 20250903, end: 20250904
  15. VFEND [Concomitant]
     Active Substance: VORICONAZOLE
     Indication: Pneumonia fungal
     Dosage: INJ 200MG?FREQUENCY TEXT: 0
     Route: 042
     Dates: start: 20251001, end: 20251001
  16. VFEND [Concomitant]
     Active Substance: VORICONAZOLE
     Indication: Pneumonia fungal
     Route: 042
     Dates: start: 20251002
  17. M-COBAL [Concomitant]
     Indication: Prophylaxis
     Dosage: CAP 500MCG
     Route: 048
     Dates: start: 20250623, end: 20250805
  18. Zoylex [Concomitant]
     Indication: Infection prophylaxis
     Dosage: TAB 400MG
     Route: 048
     Dates: start: 20250801, end: 20250805
  19. LEVOFLOXACIN [Concomitant]
     Active Substance: LEVOFLOXACIN
     Indication: Infection prophylaxis
     Dosage: TAB 500MG
     Route: 048
     Dates: start: 20250623, end: 20250904
  20. Sinil folic acid [Concomitant]
     Indication: Nutritional supplementation
     Dosage: TAB 1MG
     Route: 048
     Dates: start: 20250623, end: 20250805
  21. ALLOPURINOL [Concomitant]
     Active Substance: ALLOPURINOL
     Indication: Prophylaxis
     Dosage: TAB 100MG
     Route: 048
     Dates: start: 20250623, end: 20250804
  22. NOXAFIL [Concomitant]
     Active Substance: POSACONAZOLE
     Indication: Infection prophylaxis
     Dosage: GASTRO RESISTANT TAB 100MG
     Route: 048
     Dates: start: 20250623, end: 20250805
  23. DEBIKIN [Concomitant]
     Indication: Acute myeloid leukaemia
     Route: 042
     Dates: start: 20250812, end: 20250819
  24. DEBIKIN [Concomitant]
     Indication: Acute myeloid leukaemia
     Dosage: INJ
     Route: 042
     Dates: start: 20250623, end: 20250627
  25. DEBIKIN [Concomitant]
     Indication: Acute myeloid leukaemia
     Route: 042
     Dates: start: 20250818, end: 20250819
  26. VITAMINS [Concomitant]
     Active Substance: VITAMINS
     Indication: Nutritional supplementation
     Dosage: UNIT DOSE:1 VIAL? INJ
     Route: 042
     Dates: start: 20250910
  27. SMOFLIPID [Concomitant]
     Active Substance: FISH OIL\MEDIUM-CHAIN TRIGLYCERIDES\OLIVE OIL\SOYBEAN OIL
     Indication: Nutritional supplementation
     Dosage: 20% INJ 500ML?EVERY OTHER DAY
     Route: 042
     Dates: start: 20250702, end: 20250706
  28. SYNTHROID [Concomitant]
     Active Substance: LEVOTHYROXINE SODIUM
     Indication: Hypothyroidism
     Dosage: TAB 0.05MG
     Route: 048
  29. TAZOPERAN [Concomitant]
     Indication: C-reactive protein increased
     Dosage: UNIT DOSE: 1VIAL? INJ 4.5G
     Route: 042
     Dates: start: 20250702, end: 20250707
  30. TAZOPERAN [Concomitant]
     Indication: C-reactive protein increased
     Dosage: UNIT DOSE:1 VIAL
     Route: 042
     Dates: start: 20250904, end: 20250907
  31. Sinil pyridoxine [Concomitant]
     Indication: Prophylaxis
     Dosage: TAB 50MG
     Route: 048
     Dates: start: 20250623, end: 20250805
  32. AMBISOME [Concomitant]
     Active Substance: AMPHOTERICIN B
     Indication: Pneumonia fungal
     Route: 042
     Dates: start: 20250924, end: 20250930
  33. CRESTOR [Concomitant]
     Active Substance: ROSUVASTATIN CALCIUM
     Indication: Hyperlipidaemia
     Dosage: TAB 5MG
     Route: 048

REACTIONS (16)
  - Musculoskeletal chest pain [Recovered/Resolved]
  - Constipation [Recovered/Resolved]
  - Neutropenia [Not Recovered/Not Resolved]
  - Vomiting [Recovered/Resolved]
  - Headache [Recovered/Resolved]
  - Pyrexia [Recovered/Resolved]
  - Decreased appetite [Not Recovered/Not Resolved]
  - Anxiety [Recovered/Resolved]
  - Diarrhoea [Recovered/Resolved]
  - Hypokalaemia [Recovered/Resolved]
  - C-reactive protein increased [Recovered/Resolved]
  - Stomatitis [Recovered/Resolved]
  - Thrombocytopenia [Not Recovered/Not Resolved]
  - Nausea [Recovered/Resolved]
  - Hypokalaemia [Not Recovered/Not Resolved]
  - Anaemia [Recovered/Resolved]

NARRATIVE: CASE EVENT DATE: 20250625
